FAERS Safety Report 5638727-6 (Version None)
Quarter: 2008Q1

REPORT INFORMATION
  Report Type: 
  Country: None (occurrence: None)
  Receive Date: 20080226
  Receipt Date: 20080218
  Transmission Date: 20080703
  Serious: Yes (Hospitalization)
  Sender: FDA-Public Use
  Company Number: DE-ASTRAZENECA-2008PK00365

PATIENT
  Age: 32344 Day
  Sex: Female

DRUGS (35)
  1. METOPROLOL SUCCINATE [Suspect]
     Indication: CARDIAC FAILURE
     Dates: start: 20050303
  2. NEXIUM [Suspect]
     Indication: GASTRITIS PROPHYLAXIS
     Dates: start: 20050225
  3. FERRO SANOL [Suspect]
     Indication: PROPHYLAXIS
     Dates: start: 20050212, end: 20050314
  4. ARLEVERT [Suspect]
     Indication: VERTIGO
     Route: 048
     Dates: start: 20050212, end: 20050316
  5. TRAMAL [Suspect]
     Indication: PAIN
     Route: 048
     Dates: start: 20050212
  6. PENTAERYTHRITOL TETRANITRATE [Suspect]
     Indication: CARDIAC FAILURE
     Dates: start: 20050212
  7. EMBOLEX [Suspect]
     Indication: THROMBOSIS PROPHYLAXIS
     Route: 058
     Dates: start: 20050225
  8. CHLORALHYDRAT [Suspect]
     Indication: SLEEP DISORDER
     Route: 048
     Dates: start: 20050225
  9. MEGALAC [Suspect]
     Indication: DYSPEPSIA
     Dates: start: 20050305, end: 20050305
  10. MCP [Suspect]
     Indication: NAUSEA
     Dates: start: 20050306, end: 20050307
  11. BERLOSIN [Suspect]
     Indication: PAIN
     Route: 048
     Dates: start: 20050306, end: 20050309
  12. ZITHROMAX [Suspect]
     Indication: BRONCHITIS
     Route: 048
     Dates: start: 20050308, end: 20050310
  13. ACETYLCYSTEINE [Suspect]
     Indication: CHRONIC OBSTRUCTIVE PULMONARY DISEASE
     Route: 048
     Dates: start: 20050308
  14. ATROVENT [Suspect]
     Indication: CHRONIC OBSTRUCTIVE PULMONARY DISEASE
     Route: 055
     Dates: start: 20050308
  15. SULTANOL [Suspect]
     Indication: CHRONIC OBSTRUCTIVE PULMONARY DISEASE
     Route: 055
     Dates: start: 20050208
  16. KLACID [Suspect]
     Indication: BRONCHITIS
     Dates: start: 20050315, end: 20050316
  17. FRAXIPARIN [Concomitant]
     Indication: THROMBOSIS PROPHYLAXIS
     Route: 058
     Dates: end: 20050224
  18. DILANACIN [Concomitant]
     Indication: CARDIAC FAILURE
     Route: 048
     Dates: end: 20050225
  19. MULTI-VITAMIN [Concomitant]
     Indication: PROPHYLAXIS
     Route: 048
     Dates: end: 20080224
  20. MULTI-VITAMIN [Concomitant]
     Route: 048
     Dates: start: 20080226
  21. RADEDORM [Concomitant]
     Indication: SLEEP DISORDER
     Route: 048
     Dates: start: 20050221, end: 20050224
  22. ACETAMINOPHEN [Concomitant]
     Indication: PAIN
     Route: 048
     Dates: start: 20050223, end: 20050224
  23. ACETAMINOPHEN [Concomitant]
     Indication: PYREXIA
     Route: 048
     Dates: start: 20050223, end: 20050224
  24. ACETAMINOPHEN [Concomitant]
     Dates: start: 20050310
  25. ACETAMINOPHEN [Concomitant]
     Dates: start: 20050310
  26. NOVALGIN [Concomitant]
     Indication: PAIN
     Route: 048
     Dates: start: 20050222, end: 20050223
  27. THEOPHYLLINE [Concomitant]
     Indication: CHRONIC OBSTRUCTIVE PULMONARY DISEASE
     Route: 048
     Dates: start: 20050310, end: 20050316
  28. KAMILL MOUTH RINSE SUSPENSION [Concomitant]
     Indication: STOMATITIS
     Dates: start: 20050311
  29. TORSEMIDE [Concomitant]
     Indication: CARDIAC FAILURE
     Route: 048
     Dates: start: 20050311
  30. AMBROXOL [Concomitant]
     Indication: CHRONIC OBSTRUCTIVE PULMONARY DISEASE
     Route: 048
     Dates: start: 20050313
  31. KALINOR RETARD P [Concomitant]
     Indication: HYPOKALAEMIA
     Route: 048
     Dates: start: 20050314
  32. KLACID [Concomitant]
     Route: 048
     Dates: start: 20050315, end: 20050316
  33. CETIRIZIN [Concomitant]
     Indication: PRURITUS
     Route: 048
     Dates: start: 20050316
  34. VOMEX [Concomitant]
     Indication: NAUSEA
     Route: 048
     Dates: start: 20050316
  35. AMPHO-MORONAL [Concomitant]
     Indication: ORAL FUNGAL INFECTION
     Route: 048
     Dates: start: 20050317

REACTIONS (1)
  - STEVENS-JOHNSON SYNDROME [None]
